FAERS Safety Report 25503241 (Version 5)
Quarter: 2025Q3

REPORT INFORMATION
  Report Type: Spontaneous
  Country: JP (occurrence: JP)
  Receive Date: 20250702
  Receipt Date: 20250923
  Transmission Date: 20251020
  Serious: Yes (Death, Hospitalization, Other)
  Sender: AMGEN
  Company Number: JP-KYOWAKIRIN-2025KK009497

PATIENT
  Age: 91 Year
  Sex: Male

DRUGS (3)
  1. DARBEPOETIN ALFA [Suspect]
     Active Substance: DARBEPOETIN ALFA
     Indication: Nephrogenic anaemia
     Dosage: 120 UG, 1X/MONTH
     Route: 065
     Dates: start: 20250708
  2. DARBEPOETIN ALFA [Suspect]
     Active Substance: DARBEPOETIN ALFA
     Dosage: 60 MICROGRAM, Q4WK
     Route: 065
  3. DARBEPOETIN ALFA [Suspect]
     Active Substance: DARBEPOETIN ALFA
     Dosage: 60 MICROGRAM, Q2WK
     Route: 065

REACTIONS (4)
  - Pneumonia aspiration [Fatal]
  - Pneumonia aspiration [Recovered/Resolved]
  - Haemoglobin decreased [Unknown]
  - Gastrostomy [Unknown]

NARRATIVE: CASE EVENT DATE: 20250729
